FAERS Safety Report 4717121-6 (Version None)
Quarter: 2005Q3

REPORT INFORMATION
  Report Type: 
  Country: None (occurrence: None)
  Receive Date: 20050712
  Receipt Date: 20040923
  Transmission Date: 20060218
  Serious: Yes (Hospitalization)
  Sender: FDA-Public Use
  Company Number: PHEH2004US02545

PATIENT
  Age: 77 Year
  Sex: Female
  Weight: 75.3 kg

DRUGS (14)
  1. GLEEVEC [Suspect]
     Indication: CHRONIC MYELOID LEUKAEMIA
     Dosage: SEE IMAGE
     Route: 048
     Dates: start: 20010701, end: 20040201
  2. GLEEVEC [Suspect]
     Indication: CHRONIC MYELOID LEUKAEMIA
     Dosage: SEE IMAGE
     Route: 048
     Dates: start: 20040202, end: 20040225
  3. HYDROXYCARBAMDIE (HYDROXYCARBAMIDE) [Concomitant]
  4. ALLOPURINOL [Concomitant]
  5. MEGACE [Concomitant]
  6. CELEBREX [Concomitant]
  7. ASPIRIN [Concomitant]
  8. DURAGESIC (FENTANYL) TRANS-THERAPEUTIC-SYSTEM [Concomitant]
  9. FOLATE SODIUM (FOLATE SODIUM) [Concomitant]
  10. NEURONTIN [Concomitant]
  11. IRON SULPHATE (NCH) (FERROUS SULFATE) FILM-COATED TABLET [Concomitant]
  12. TYLENOL (PARACETAMOL) [Concomitant]
  13. COLACE (DOCUSATE SODIUM) [Concomitant]
  14. PROTONIX [Concomitant]

REACTIONS (7)
  - ABDOMINAL PAIN [None]
  - CHEST PAIN [None]
  - DEHYDRATION [None]
  - NAUSEA [None]
  - OEDEMA PERIPHERAL [None]
  - VOMITING [None]
  - WHITE BLOOD CELL COUNT DECREASED [None]
